FAERS Safety Report 5499438-3 (Version None)
Quarter: 2007Q4

REPORT INFORMATION
  Report Type: 
  Country: None (occurrence: None)
  Receive Date: 20071026
  Receipt Date: 20071018
  Transmission Date: 20080405
  Serious: Yes (Hospitalization)
  Sender: FDA-Public Use
  Company Number: PHBS2007NL17420

PATIENT
  Age: 55 Year
  Sex: Female
  Weight: 78 kg

DRUGS (3)
  1. SANDOSTATIN LAR [Suspect]
     Indication: ACROMEGALY
     Dosage: 30 MG, QMO
     Dates: start: 20050101
  2. THYRAX [Concomitant]
     Dosage: 100 UG, QD
  3. HYDROXOCOBALAMIN [Concomitant]
     Dosage: 1000 UG/D

REACTIONS (1)
  - ILEUS [None]
